FAERS Safety Report 5302882-8 (Version None)
Quarter: 2007Q2

REPORT INFORMATION
  Report Type: 
  Country: None (occurrence: None)
  Receive Date: 20070420
  Receipt Date: 20070412
  Transmission Date: 20071010
  Serious: Yes (Hospitalization)
  Sender: FDA-Public Use
  Company Number: FR-JNJFOC-20070305360

PATIENT
  Age: 46 Year
  Sex: Male

DRUGS (3)
  1. REMICADE [Suspect]
     Route: 042
  2. REMICADE [Suspect]
     Indication: COLITIS ULCERATIVE
     Dosage: FIRST DOSE, DATE OF ADMINISTRATION NOT PROVIDED
     Route: 042
  3. ATACAND [Concomitant]

REACTIONS (2)
  - HYPERKERATOSIS [None]
  - TRICHOPHYTON INFECTION [None]
